FAERS Safety Report 4992017-3 (Version None)
Quarter: 2006Q2

REPORT INFORMATION
  Report Type: 
  Country: None (occurrence: None)
  Receive Date: 20060504
  Receipt Date: 20060424
  Transmission Date: 20061013
  Serious: Yes (Hospitalization)
  Sender: FDA-Public Use
  Company Number: CN-JNJFOC-20060405338

PATIENT
  Sex: Male

DRUGS (1)
  1. IMODIUM [Suspect]
     Route: 065
     Dates: start: 20060313, end: 20060314

REACTIONS (3)
  - HEPATIC FUNCTION ABNORMAL [None]
  - SOMNOLENCE [None]
  - VOMITING [None]
